FAERS Safety Report 9649643 (Version 1)
Quarter: 2013Q4

REPORT INFORMATION
  Report Type: Spontaneous
  Country: DK (occurrence: FR)
  Receive Date: 20131028
  Receipt Date: 20131028
  Transmission Date: 20140711
  Serious: Yes (Hospitalization)
  Sender: FDA-Public Use
  Company Number: FR-FRI-1000050540

PATIENT
  Age: 30 Year
  Sex: Male

DRUGS (4)
  1. ESCITALOPRAM [Suspect]
     Dosage: OVERDOSE OF 84 TABLETS
     Route: 048
     Dates: start: 20130220, end: 20130220
  2. THERALENE [Suspect]
     Dosage: OVERDOSE OF 75 TABLETS
     Route: 048
     Dates: start: 20130220, end: 20130220
  3. DIAZEPAM [Suspect]
     Dosage: OVERDOSE OF 20 TABLETS
     Route: 048
     Dates: start: 20130220, end: 20130220
  4. ACTISKENAN [Suspect]
     Dosage: OVERDOSE OF 7 CAPSULES
     Route: 048
     Dates: start: 20130220, end: 20130220

REACTIONS (3)
  - Intentional overdose [Recovered/Resolved]
  - Disturbance in attention [Recovered/Resolved]
  - Respiratory disorder [Recovered/Resolved]
